FAERS Safety Report 13456658 (Version 1)
Quarter: 2017Q2

REPORT INFORMATION
  Report Type: Spontaneous
  Country: CH (occurrence: CH)
  Receive Date: 20170419
  Receipt Date: 20170419
  Transmission Date: 20170830
  Serious: Yes (Other)
  Sender: FDA-Public Use
  Company Number: CH-JNJFOC-20170301690

PATIENT
  Age: 49 Year
  Sex: Female

DRUGS (3)
  1. VIMOVO [Suspect]
     Active Substance: ESOMEPRAZOLE MAGNESIUM\NAPROXEN
     Indication: PRODUCT USED FOR UNKNOWN INDICATION
     Dosage: FIXED THERAPY
     Route: 065
     Dates: start: 201609, end: 201612
  2. SIMPONI [Suspect]
     Active Substance: GOLIMUMAB
     Indication: AXIAL SPONDYLOARTHRITIS
     Dosage: ADMINISTERED 3 TIMES
     Route: 058
     Dates: start: 201609, end: 201612
  3. ARCOXIA [Suspect]
     Active Substance: ETORICOXIB
     Indication: PRODUCT USED FOR UNKNOWN INDICATION
     Dosage: IF NEEDED.
     Route: 048
     Dates: start: 201609, end: 201612

REACTIONS (10)
  - Weight decreased [Unknown]
  - Influenza like illness [Unknown]
  - Myalgia [Unknown]
  - General physical health deterioration [Unknown]
  - Feeling hot [Unknown]
  - Decreased appetite [Unknown]
  - Erythema [Unknown]
  - Asthenia [Unknown]
  - Light chain analysis increased [Unknown]
  - Light chain analysis abnormal [Unknown]

NARRATIVE: CASE EVENT DATE: 201609
